FAERS Safety Report 10222093 (Version 1)
Quarter: 2014Q2

REPORT INFORMATION
  Report Type: Spontaneous
  Country: US (occurrence: None)
  Receive Date: 20140606
  Receipt Date: 20140606
  Transmission Date: 20141212
  Serious: Yes (Other)
  Sender: FDA-Public Use
  Company Number: None

PATIENT
  Age: 49 Year
  Sex: Female
  Weight: 79.38 kg

DRUGS (2)
  1. QVAR [Suspect]
     Indication: CHRONIC OBSTRUCTIVE PULMONARY DISEASE
     Dosage: 30, QVAR 80 MCG X2, TWICE DAILY, INHALATION
     Route: 055
  2. QVAR [Suspect]
     Indication: ASTHMA
     Dosage: 30, QVAR 80 MCG X2, TWICE DAILY, INHALATION
     Route: 055

REACTIONS (1)
  - Drug ineffective [None]
